FAERS Safety Report 5193737-0 (Version None)
Quarter: 2006Q4

REPORT INFORMATION
  Report Type: 
  Country: None (occurrence: None)
  Receive Date: 20061228
  Receipt Date: 20061227
  Transmission Date: 20070319
  Serious: Yes (Hospitalization)
  Sender: FDA-Public Use
  Company Number: US-GLAXOSMITHKLINE-A0632613A

PATIENT
  Age: 76 Year
  Sex: Male

DRUGS (4)
  1. ADVAIR DISKUS 100/50 [Suspect]
     Indication: CHRONIC OBSTRUCTIVE PULMONARY DISEASE
     Route: 055
     Dates: start: 20050301
  2. FLONASE [Concomitant]
  3. ALLOPURINOL SODIUM [Concomitant]
  4. LISINOPRIL [Concomitant]

REACTIONS (8)
  - ATRIAL FLUTTER [None]
  - BLOOD TESTOSTERONE DECREASED [None]
  - DIZZINESS [None]
  - DYSPHONIA [None]
  - HAEMORRHAGIC DISORDER [None]
  - PIGMENTATION DISORDER [None]
  - SKIN HAEMORRHAGE [None]
  - TREMOR [None]
